FAERS Safety Report 9009797 (Version 1)
Quarter: 2013Q1

REPORT INFORMATION
  Report Type: Spontaneous
  Country: IT (occurrence: IT)
  Receive Date: 20130110
  Receipt Date: 20130110
  Transmission Date: 20140127
  Serious: Yes (Hospitalization)
  Sender: FDA-Public Use
  Company Number: IT-SANOFI-AVENTIS-2013SA001391

PATIENT
  Age: 85 Year
  Sex: Female

DRUGS (6)
  1. LANTUS SOLOSTAR [Suspect]
     Indication: DIABETES MELLITUS
     Dosage: DOSE - 0.22 MG ( AS REPORTED)
     Route: 058
     Dates: start: 20101211, end: 20121211
  2. SOLOSTAR [Suspect]
     Indication: DEVICE THERAPY
     Dates: start: 20101211, end: 20121211
  3. ACTRAPID [Suspect]
     Indication: DIABETES MELLITUS
     Route: 058
     Dates: start: 20101211, end: 20121211
  4. RAMIPRIL [Concomitant]
  5. DEURSIL [Concomitant]
     Dosage: STRENGTH; 300 MG
  6. CARDIOASPIRIN [Concomitant]
     Dosage: STRENGTH; 100 MG

REACTIONS (2)
  - Syncope [Recovering/Resolving]
  - Fall [Recovering/Resolving]
